FAERS Safety Report 6443996-9 (Version None)
Quarter: 2009Q4

REPORT INFORMATION
  Report Type: 
  Country: None (occurrence: None)
  Receive Date: 20091116
  Receipt Date: 20091116
  Transmission Date: 20100525
  Serious: No
  Sender: FDA-Public Use
  Company Number: None

PATIENT
  Age: 83 Year
  Sex: Male
  Weight: 61.2356 kg

DRUGS (2)
  1. ARICEPT [Suspect]
     Indication: DEMENTIA
     Dosage: 10 MG DAILY HS - PO
     Route: 048
     Dates: start: 20080306, end: 20091023
  2. NAMENDA [Suspect]
     Indication: DEMENTIA
     Dosage: 10MG BID PO
     Route: 048
     Dates: start: 20080306, end: 20091023

REACTIONS (7)
  - AGITATION [None]
  - ANXIETY [None]
  - COMMUNICATION DISORDER [None]
  - CONTUSION [None]
  - FEELING COLD [None]
  - GAIT DISTURBANCE [None]
  - MOOD ALTERED [None]
